FAERS Safety Report 8066915-0 (Version None)
Quarter: 2012Q1

REPORT INFORMATION
  Report Type: 
  Country: None (occurrence: None)
  Receive Date: 20120124
  Receipt Date: 20120117
  Transmission Date: 20120608
  Serious: Yes (Other)
  Sender: FDA-Public Use
  Company Number: PHHY2012JP004407

PATIENT

DRUGS (1)
  1. LOSARTAN POTASSIUM [Suspect]
     Route: 064

REACTIONS (6)
  - DELAYED FONTANELLE CLOSURE [None]
  - RENAL TUBULAR DISORDER [None]
  - FOETAL EXPOSURE DURING PREGNANCY [None]
  - BLOOD ALDOSTERONE INCREASED [None]
  - RENIN INCREASED [None]
  - BETA 2 MICROGLOBULIN INCREASED [None]
